FAERS Safety Report 6713680-2 (Version None)
Quarter: 2010Q2

REPORT INFORMATION
  Report Type: 
  Country: None (occurrence: None)
  Receive Date: 20100503
  Receipt Date: 20100427
  Transmission Date: 20101027
  Serious: Yes (Hospitalization)
  Sender: FDA-Public Use
  Company Number: CAP10000120

PATIENT
  Age: 85 Year
  Sex: Male

DRUGS (1)
  1. ASACOL [Suspect]
     Dosage: 800 MG THREE TIMES A DAY ORAL
     Route: 048

REACTIONS (1)
  - HIP ARTHROPLASTY [None]
